FAERS Safety Report 8119642-5 (Version None)
Quarter: 2012Q1

REPORT INFORMATION
  Report Type: 
  Country: None (occurrence: None)
  Receive Date: 20120203
  Receipt Date: 20120117
  Transmission Date: 20120608
  Serious: Yes (Hospitalization)
  Sender: FDA-Public Use
  Company Number: JPI-P-019382

PATIENT
  Age: 56 Year
  Sex: Female

DRUGS (2)
  1. XYREM [Suspect]
     Indication: CATAPLEXY
     Dosage: 6 GM (3 GM, 2 IN 1 D), ORAL
     Route: 048
     Dates: start: 20030401
  2. MULTIPLE UNSPECIFIED MEDICATIONS [Concomitant]

REACTIONS (9)
  - HYPERTENSION [None]
  - CEREBROVASCULAR ACCIDENT [None]
  - CHONDROPATHY [None]
  - LATEX ALLERGY [None]
  - BACK PAIN [None]
  - SOMNOLENCE [None]
  - CONTUSION [None]
  - CONDITION AGGRAVATED [None]
  - COUGH [None]
